FAERS Safety Report 21144055 (Version 2)
Quarter: 2022Q3

REPORT INFORMATION
  Report Type: Spontaneous
  Country: JP (occurrence: JP)
  Receive Date: 20220728
  Receipt Date: 20220919
  Transmission Date: 20221027
  Serious: Yes (Other)
  Sender: FDA-Public Use
  Company Number: JP-Eisai-202205020_LEN-HCC_P_1

PATIENT
  Age: 67 Year
  Sex: Female

DRUGS (3)
  1. LENVIMA [Suspect]
     Active Substance: LENVATINIB
     Indication: Hepatocellular carcinoma
     Route: 048
     Dates: start: 20220623, end: 202206
  2. AMLODIPINE BESYLATE\IRBESARTAN [Concomitant]
     Active Substance: AMLODIPINE BESYLATE\IRBESARTAN
     Indication: Hypertension
     Dosage: DOSE AND FREQUENCY UNKNOWN
     Route: 065
  3. NILVADIPINE [Concomitant]
     Active Substance: NILVADIPINE
     Indication: Hypertension
     Route: 065

REACTIONS (5)
  - Peritonitis bacterial [Recovered/Resolved]
  - Oedema [Recovered/Resolved]
  - Ascites [Unknown]
  - Diarrhoea [Recovered/Resolved]
  - Hypertension [Recovered/Resolved]

NARRATIVE: CASE EVENT DATE: 20220601
